FAERS Safety Report 25207881 (Version 1)
Quarter: 2025Q2

REPORT INFORMATION
  Report Type: Spontaneous
  Country: US (occurrence: None)
  Receive Date: 20250416
  Receipt Date: 20250416
  Transmission Date: 20250717
  Serious: Yes (Life-Threatening)
  Sender: FDA-CTU
  Company Number: None

PATIENT
  Age: 48 Year
  Sex: Male
  Weight: 115.65 kg

DRUGS (1)
  1. AFRIN [Suspect]
     Active Substance: OXYMETAZOLINE HYDROCHLORIDE
     Indication: Sinus congestion
     Dates: start: 19760608, end: 20250411

REACTIONS (3)
  - Psychotic disorder [None]
  - Depression [None]
  - Anxiety [None]

NARRATIVE: CASE EVENT DATE: 20250416
